FAERS Safety Report 11270025 (Version 1)
Quarter: 2015Q3

REPORT INFORMATION
  Report Type: Spontaneous
  Country: PL (occurrence: PL)
  Receive Date: 20150714
  Receipt Date: 20150714
  Transmission Date: 20151125
  Serious: Yes (Hospitalization)
  Sender: FDA-Public Use
  Company Number: PL-GLAXOSMITHKLINE-PL2015GSK100313

PATIENT
  Age: 31 Year
  Sex: Male

DRUGS (5)
  1. ACITRETIN. [Suspect]
     Active Substance: ACITRETIN
     Dosage: 75 MG, QD
     Route: 065
  2. CYCLOSPORINE. [Suspect]
     Active Substance: CYCLOSPORINE
     Dosage: UNK (DOSE REDUCED)
     Route: 065
  3. CYCLOSPORINE. [Suspect]
     Active Substance: CYCLOSPORINE
     Indication: PUSTULAR PSORIASIS
     Dosage: 5 MG/KG, UNK
     Route: 065
  4. ACITRETIN. [Suspect]
     Active Substance: ACITRETIN
     Dosage: UNK (DOSE REDUCED)
     Route: 065
  5. ACITRETIN. [Suspect]
     Active Substance: ACITRETIN
     Indication: PUSTULAR PSORIASIS
     Dosage: 50 MG, QD
     Route: 065
     Dates: start: 2009

REACTIONS (6)
  - Rash pustular [Unknown]
  - Lipids increased [Unknown]
  - Skin degenerative disorder [Unknown]
  - Blood triglycerides increased [Unknown]
  - Blood creatinine increased [Unknown]
  - Skin lesion [Recovered/Resolved]
